FAERS Safety Report 19998705 (Version 1)
Quarter: 2021Q4

REPORT INFORMATION
  Report Type: Spontaneous
  Country: US (occurrence: US)
  Receive Date: 20211026
  Receipt Date: 20211026
  Transmission Date: 20220303
  Serious: Yes (Other)
  Sender: FDA-Public Use
  Company Number: US-GLAXOSMITHKLINE- US2021GSK221784

PATIENT
  Sex: Female

DRUGS (8)
  1. ZANTAC [Suspect]
     Active Substance: RANITIDINE HYDROCHLORIDE
     Indication: Dyspepsia
     Dosage: 75 MG, TWICE A DAY
     Route: 065
     Dates: start: 1998, end: 201908
  2. ZANTAC [Suspect]
     Active Substance: RANITIDINE HYDROCHLORIDE
     Indication: Gastric ulcer
     Dosage: 150 MG, TWICE A DAY
     Route: 065
     Dates: start: 1998, end: 201908
  3. ZANTAC [Suspect]
     Active Substance: RANITIDINE HYDROCHLORIDE
     Dosage: 75 MG, 3 TIMES PER WEEK
     Route: 065
     Dates: start: 1998, end: 201908
  4. ZANTAC [Suspect]
     Active Substance: RANITIDINE HYDROCHLORIDE
     Dosage: 150 MG,3 TIMES PER WEEK
     Route: 065
     Dates: start: 1998, end: 201908
  5. ZANTAC [Suspect]
     Active Substance: RANITIDINE HYDROCHLORIDE
     Indication: Dyspepsia
     Dosage: 75 MG,TWICE A DAY
     Route: 065
     Dates: start: 1998, end: 201908
  6. ZANTAC [Suspect]
     Active Substance: RANITIDINE HYDROCHLORIDE
     Indication: Gastric ulcer
     Dosage: 150 MG,TWICE A DAY
     Route: 065
     Dates: start: 1998, end: 201908
  7. ZANTAC [Suspect]
     Active Substance: RANITIDINE HYDROCHLORIDE
     Dosage: 75 MG,3 TIMES PER WEEK
     Route: 065
     Dates: start: 1998, end: 201908
  8. ZANTAC [Suspect]
     Active Substance: RANITIDINE HYDROCHLORIDE
     Dosage: 150 MG,3 TIMES PER WEEK
     Route: 065
     Dates: start: 1998, end: 201908

REACTIONS (1)
  - Uterine cancer [Unknown]
